FAERS Safety Report 13719270 (Version 2)
Quarter: 2017Q3

REPORT INFORMATION
  Report Type: Spontaneous
  Country: DE (occurrence: DE)
  Receive Date: 20170705
  Receipt Date: 20170712
  Transmission Date: 20171127
  Serious: Yes (Congenital Anomaly, Other)
  Sender: FDA-Public Use
  Company Number: DE-ABBVIE-17P-062-2028644-00

PATIENT

DRUGS (1)
  1. VALPROIC ACID. [Suspect]
     Active Substance: VALPROIC ACID
     Indication: MATERNAL EXPOSURE TIMING UNSPECIFIED
     Route: 064

REACTIONS (18)
  - Haemangioma [Unknown]
  - Multiple congenital abnormalities [Unknown]
  - Growth hormone deficiency [Recovered/Resolved]
  - Hair colour changes [Unknown]
  - Hyperbilirubinaemia neonatal [Recovered/Resolved]
  - Duodenal atresia [Unknown]
  - Spinal fusion surgery [Unknown]
  - Small for dates baby [Recovering/Resolving]
  - Diastasis recti abdominis [Unknown]
  - Duodenal obstruction [Unknown]
  - Feeding disorder [Unknown]
  - Vomiting [Unknown]
  - Malnutrition [Recovering/Resolving]
  - Tachypnoea [Unknown]
  - Jaundice neonatal [Unknown]
  - Scoliosis [Unknown]
  - Foetal exposure during pregnancy [Unknown]
  - Renal disorder [Unknown]
